FAERS Safety Report 7699079-3 (Version None)
Quarter: 2011Q3

REPORT INFORMATION
  Report Type: 
  Country: None (occurrence: None)
  Receive Date: 20110819
  Receipt Date: 20110815
  Transmission Date: 20111222
  Serious: Yes (Death, Other)
  Sender: FDA-Public Use
  Company Number: US-ASTRAZENECA-2011SE31332

PATIENT
  Age: 24818 Day
  Sex: Female

DRUGS (23)
  1. SYNTHROID [Concomitant]
     Route: 048
     Dates: start: 20100701
  2. NORCO [Concomitant]
     Indication: PAIN
     Dosage: 10 MGS-325 MGS ONE TABLET AS NEEDED EVERY FOUR TO SIX HOURS
     Route: 048
     Dates: start: 20100701
  3. SPIRIVA [Concomitant]
     Dosage: ONE INHALATION DAILY
     Dates: start: 20100701
  4. FUROSEMIDE [Concomitant]
     Dosage: 40 MGS EVERY AM AND 20 MG IN PM
     Dates: start: 20100701
  5. PRILOSEC [Concomitant]
     Indication: DYSPEPSIA
     Route: 048
     Dates: start: 20100927
  6. CRESTOR [Concomitant]
     Route: 048
  7. PRAVACHOL [Concomitant]
     Route: 048
     Dates: start: 20110125
  8. ARIMIDEX [Suspect]
     Route: 048
     Dates: start: 20100701
  9. ROSUVASTATIN [Concomitant]
     Route: 048
     Dates: start: 20100716
  10. REMERON [Concomitant]
     Route: 048
     Dates: start: 20101020
  11. XOPENEX [Concomitant]
     Dosage: 0.63 MG/3 ML ONE INHALATION TWO TIMES DAILY
     Route: 055
     Dates: start: 20100701
  12. ATIVAN [Concomitant]
     Dates: start: 20100710
  13. DIGOXIN [Concomitant]
     Route: 048
     Dates: start: 20100701
  14. MS CONTIN [Concomitant]
     Route: 048
     Dates: start: 20101020
  15. JANUMET [Concomitant]
     Dosage: 50 MGS-1000 MGS
     Route: 048
     Dates: start: 20101007
  16. COUMADIN [Concomitant]
     Route: 048
     Dates: start: 20101101
  17. POTASSIUM CHLORIDE [Concomitant]
     Route: 048
     Dates: start: 20100701
  18. CELEBREX [Concomitant]
     Route: 048
     Dates: start: 20100701
  19. ADVAIR DISKUS 100/50 [Concomitant]
     Dosage: 250 MCGS 50 MCGS TWO PUFFS INHALATION TWO TIMES DAILY
     Route: 055
     Dates: start: 20100701
  20. COUMADIN [Concomitant]
     Route: 048
     Dates: start: 20101101
  21. OXYGEN [Concomitant]
     Dosage: 4.5 L AS NEEDED
     Dates: start: 20100701
  22. ROXANOL [Concomitant]
     Dosage: 0.5 MG TO ONE MG AS NEEDED
     Dates: start: 20100713
  23. VERAPAMIL HCL [Concomitant]
     Dosage: HALF TABLET DAILY
     Route: 048
     Dates: start: 20101108

REACTIONS (3)
  - DEATH [None]
  - CHRONIC OBSTRUCTIVE PULMONARY DISEASE [None]
  - ATRIAL FIBRILLATION [None]
